FAERS Safety Report 7376818-2 (Version None)
Quarter: 2011Q1

REPORT INFORMATION
  Report Type: 
  Country: None (occurrence: None)
  Receive Date: 20110325
  Receipt Date: 20110316
  Transmission Date: 20110831
  Serious: Yes (Other)
  Sender: FDA-Public Use
  Company Number: JP-AMGEN-JPNCT2011001532

PATIENT
  Age: 80 Year
  Sex: Female
  Weight: 44 kg

DRUGS (13)
  1. PANITUMUMAB [Suspect]
     Dosage: 6 MG/KG, Q2WK
     Dates: start: 20101112
  2. TAKEPRON OD TABLETS 15 [Concomitant]
     Route: 048
  3. TSUMURA HANGE-SHASHIN-TO [Concomitant]
     Route: 048
  4. DIOVAN [Concomitant]
     Route: 048
  5. AZUNOL GARGLE LIQUID [Concomitant]
     Route: 049
  6. IBRUPROFEN [Concomitant]
     Route: 048
  7. LOPEMIN [Concomitant]
     Route: 048
  8. GRAN [Concomitant]
     Route: 042
  9. IRINOTECAN HYDROCHLORIDE [Suspect]
     Indication: COLORECTAL CANCER
     Route: 041
     Dates: start: 20101004, end: 20101004
  10. MAXIPIME [Concomitant]
     Route: 042
  11. TS 1 [Suspect]
     Indication: COLORECTAL CANCER
     Route: 048
     Dates: start: 20101004, end: 20101018
  12. PANITUMUMAB [Suspect]
     Indication: COLORECTAL CANCER
     Dosage: 6 MG/KG, Q2WK
     Route: 041
     Dates: start: 20101004
  13. CORTICOSTEROIDS [Concomitant]
     Indication: PROPHYLAXIS
     Route: 065

REACTIONS (5)
  - NEUTROPHIL COUNT DECREASED [None]
  - DERMATITIS ACNEIFORM [None]
  - STOMATITIS [None]
  - PARONYCHIA [None]
  - DIARRHOEA [None]
